FAERS Safety Report 18503699 (Version 1)
Quarter: 2020Q4

REPORT INFORMATION
  Report Type: Spontaneous
  Country: CN (occurrence: CN)
  Receive Date: 20201113
  Receipt Date: 20201113
  Transmission Date: 20210114
  Serious: Yes (Hospitalization, Other)
  Sender: FDA-Public Use
  Company Number: NVSC2020CN298845

PATIENT
  Age: 49 Year
  Sex: Male

DRUGS (5)
  1. DICLOFENAC SODIUM. [Suspect]
     Active Substance: DICLOFENAC SODIUM
     Indication: GOUT
     Dosage: UNK
     Route: 048
  2. PREDNISONE. [Concomitant]
     Active Substance: PREDNISONE
     Indication: GOUT
     Dosage: UNK
     Route: 065
  3. BENZBROMARONE [Suspect]
     Active Substance: BENZBROMARONE
     Indication: GOUT
     Dosage: UNK
     Route: 048
  4. FEBUXOSTAT. [Concomitant]
     Active Substance: FEBUXOSTAT
     Indication: BLOOD URIC ACID INCREASED
     Dosage: UNK
     Route: 065
  5. COLCHICINE. [Concomitant]
     Active Substance: COLCHICINE
     Indication: GOUT
     Dosage: UNK
     Route: 065

REACTIONS (23)
  - Acute kidney injury [Unknown]
  - Hydronephrosis [Unknown]
  - Arthropathy [Unknown]
  - Ureterolithiasis [Unknown]
  - Pyrexia [Recovered/Resolved]
  - Fatigue [Unknown]
  - Blood creatinine increased [Unknown]
  - Oedema peripheral [Unknown]
  - Renal impairment [Unknown]
  - Nephrolithiasis [Unknown]
  - Urinary occult blood positive [Unknown]
  - Anuria [Unknown]
  - Urinary tract infection [Unknown]
  - Decreased appetite [Unknown]
  - Micturition disorder [Unknown]
  - Abdominal discomfort [Unknown]
  - Nephropathy [Unknown]
  - Ureteric dilatation [Unknown]
  - Hyperuricaemia [Unknown]
  - Nausea [Unknown]
  - Disease recurrence [Unknown]
  - Abdominal pain lower [Recovered/Resolved]
  - Polyuria [Recovered/Resolved]
